FAERS Safety Report 13534453 (Version 8)
Quarter: 2018Q4

REPORT INFORMATION
  Report Type: Spontaneous
  Country: US (occurrence: US)
  Receive Date: 20170511
  Receipt Date: 20181107
  Transmission Date: 20190204
  Serious: Yes (Hospitalization)
  Sender: FDA-Public Use
  Company Number: US-BIOGEN-2017BI00398775

PATIENT
  Age: 40 Year
  Sex: Female

DRUGS (3)
  1. TYSABRI [Suspect]
     Active Substance: NATALIZUMAB
     Route: 042
     Dates: start: 201808
  2. TYSABRI [Suspect]
     Active Substance: NATALIZUMAB
     Indication: MULTIPLE SCLEROSIS
     Dosage: INFUSED OVER 1 HOUR
     Route: 042
     Dates: start: 20170201, end: 20171003
  3. TYSABRI [Suspect]
     Active Substance: NATALIZUMAB
     Dosage: INFUSED OVER 1 HOUR
     Route: 042
     Dates: start: 201802

REACTIONS (10)
  - Feeling abnormal [Recovered/Resolved]
  - Product dose omission [Unknown]
  - Retching [Recovered/Resolved]
  - Gait disturbance [Not Recovered/Not Resolved]
  - Multiple allergies [Recovered/Resolved]
  - Infection [Recovered/Resolved]
  - Food poisoning [Recovered/Resolved]
  - Hypersensitivity [Recovered/Resolved]
  - Appendicitis perforated [Recovered/Resolved]
  - Chest discomfort [Recovered/Resolved]

NARRATIVE: CASE EVENT DATE: 20170316
